FAERS Safety Report 18258033 (Version 3)
Quarter: 2025Q1

REPORT INFORMATION
  Report Type: Report from Study
  Country: CO (occurrence: CO)
  Receive Date: 20200911
  Receipt Date: 20250321
  Transmission Date: 20250409
  Serious: Yes (Hospitalization, Other)
  Sender: ASTELLAS
  Company Number: CO-ASTELLAS-2019US014371

PATIENT
  Age: 69 Year
  Sex: Male
  Weight: 72 kg

DRUGS (8)
  1. PROGRAF [Suspect]
     Active Substance: TACROLIMUS
     Indication: Renal transplant
     Dosage: 4 MG, ONCE DAILY (4 CAPSULES OF 1 MG)
     Route: 048
     Dates: start: 20171110, end: 20190323
  2. PROGRAF [Suspect]
     Active Substance: TACROLIMUS
     Dosage: 2 MG, ONCE DAILY (2 CAPSULES OF 1 MG)
     Route: 048
     Dates: start: 20190323
  3. PROGRAF [Suspect]
     Active Substance: TACROLIMUS
     Dosage: 1 MG, ONCE DAILY
     Route: 048
  4. PROGRAF [Suspect]
     Active Substance: TACROLIMUS
     Dosage: DAILY DOSE OF 2 MG EVERY 24 HOURS
     Route: 048
  5. PROGRAF [Suspect]
     Active Substance: TACROLIMUS
     Route: 048
     Dates: start: 2021
  6. PROGRAF [Suspect]
     Active Substance: TACROLIMUS
     Indication: Renal transplant
     Dosage: PROGRAF XL 0.5 MG (1 CAPSULE) AND PROGRAF XL 1 MG (1 CAPSULE): DAILY DOSE OF 1.5 MG EVERY 24 HOURS.
     Route: 048
     Dates: end: 2025
  7. METOPROLOL [Concomitant]
     Active Substance: METOPROLOL
     Indication: Product used for unknown indication
     Dosage: 50 MG, ONCE DAILY
     Route: 048
  8. AMLODIPINE [Concomitant]
     Active Substance: AMLODIPINE BESYLATE
     Indication: Product used for unknown indication
     Dosage: 5 MG, ONCE DAILY
     Route: 048

REACTIONS (15)
  - Toxicity to various agents [Recovered/Resolved]
  - Immunosuppressant drug level increased [Unknown]
  - Dizziness [Unknown]
  - Peripheral coldness [Unknown]
  - Fall [Unknown]
  - Toxicity to various agents [Unknown]
  - Diarrhoea [Unknown]
  - Feeling of despair [Recovered/Resolved]
  - Tongue dry [Recovered/Resolved]
  - Pruritus [Recovered/Resolved]
  - Immunosuppressant drug level increased [Recovered/Resolved]
  - Peripheral coldness [Unknown]
  - Dizziness [Unknown]
  - Diarrhoea [Unknown]
  - Toxicity to various agents [Unknown]

NARRATIVE: CASE EVENT DATE: 20190201
